FAERS Safety Report 6242273-9 (Version None)
Quarter: 2009Q2

REPORT INFORMATION
  Report Type: 
  Country: None (occurrence: None)
  Receive Date: 20090622
  Receipt Date: 20090622
  Transmission Date: 20091009
  Serious: No
  Sender: FDA-Public Use
  Company Number: None

PATIENT
  Age: 65 Year
  Sex: Male

DRUGS (1)
  1. TRAMADOL HCL [Suspect]
     Indication: PAIN
     Dosage: 50 MG PRN PO
     Route: 048
     Dates: start: 20090107, end: 20090107

REACTIONS (3)
  - HYPERHIDROSIS [None]
  - NAUSEA [None]
  - VOMITING [None]
